FAERS Safety Report 23634140 (Version 1)
Quarter: 2024Q1

REPORT INFORMATION
  Report Type: Spontaneous
  Country: GB (occurrence: GB)
  Receive Date: 20240314
  Receipt Date: 20240314
  Transmission Date: 20240410
  Serious: Yes (Death)
  Sender: FDA-Public Use
  Company Number: GB-Eisai-EC-2024-161505

PATIENT
  Sex: Male

DRUGS (2)
  1. FYCOMPA [Suspect]
     Active Substance: PERAMPANEL
     Indication: Epilepsy
     Dosage: UNKNOWN DOSE AND FREQUENCY
     Route: 041
  2. FYCOMPA [Suspect]
     Active Substance: PERAMPANEL
     Dosage: UNKNOWN DOSE AND FREQUENCY AT A LOWER DOSE
     Route: 041

REACTIONS (2)
  - Seizure [Fatal]
  - Expired product administered [Fatal]
